FAERS Safety Report 11972196 (Version 2)
Quarter: 2016Q1

REPORT INFORMATION
  Report Type: Spontaneous
  Country: US (occurrence: US)
  Receive Date: 20160128
  Receipt Date: 20160302
  Transmission Date: 20160526
  Serious: Yes (Death, Hospitalization)
  Sender: FDA-Public Use
  Company Number: PHEH2016US002131

PATIENT
  Age: 60 Year
  Sex: Female

DRUGS (1)
  1. AFINITOR [Suspect]
     Active Substance: EVEROLIMUS
     Indication: BREAST CANCER METASTATIC
     Dosage: 10 MG, QD
     Route: 048
     Dates: start: 20150820

REACTIONS (3)
  - Head injury [Fatal]
  - Fall [Fatal]
  - Traumatic intracranial haemorrhage [Fatal]

NARRATIVE: CASE EVENT DATE: 20160111
